FAERS Safety Report 9901671 (Version 2)
Quarter: 2014Q1

REPORT INFORMATION
  Report Type: Report from Study
  Country: US (occurrence: US)
  Receive Date: 20140217
  Receipt Date: 20140224
  Transmission Date: 20141002
  Serious: Yes (Death)
  Sender: FDA-Public Use
  Company Number: PHEH2014US003142

PATIENT
  Age: 80 Year
  Sex: Male
  Weight: 65.76 kg

DRUGS (6)
  1. GLEEVEC [Suspect]
     Indication: MYELOID LEUKAEMIA
     Dosage: 400 MG, EVERY DAY
     Route: 048
     Dates: start: 20110929
  2. PLAVIX [Concomitant]
     Dosage: 75 U, DAILY
     Route: 048
  3. COLACE [Concomitant]
     Dosage: 100 U, DAILY
     Route: 048
  4. FERROUS SULFATE [Concomitant]
     Dosage: 325 U, DAILY
     Route: 048
  5. HYDROCHLOROTHIAZIDE [Concomitant]
     Dosage: 25 U, DAILY
     Route: 048
  6. LANSOPRAZOLE [Concomitant]
     Dosage: 30 U, DAILY
     Route: 048

REACTIONS (1)
  - Death [Fatal]
